FAERS Safety Report 23628262 (Version 1)
Quarter: 2024Q1

REPORT INFORMATION
  Report Type: Spontaneous
  Country: IS (occurrence: IS)
  Receive Date: 20240313
  Receipt Date: 20240313
  Transmission Date: 20240410
  Serious: Yes (Other)
  Sender: FDA-Public Use
  Company Number: None

PATIENT
  Age: 3 Year
  Sex: Male
  Weight: 18 kg

DRUGS (3)
  1. MONTELUKAST SODIUM [Suspect]
     Active Substance: MONTELUKAST SODIUM
     Indication: Asthma
     Dosage: 5 MILLIGRAM, QD (1 TABLET A DAY)
     Route: 065
     Dates: start: 20211019, end: 20211128
  2. ALBUTEROL SULFATE [Concomitant]
     Active Substance: ALBUTEROL SULFATE
     Indication: Asthma
     Dosage: UNK, Q6H (2-4 DOSES EVERY 4 HOURS WHEN NEEDED)
     Route: 065
     Dates: start: 20211019, end: 20211109
  3. FLIXOTIDE OSP [Concomitant]
     Indication: Asthma
     Dosage: 250 MICROGRAM, Q12H (2 DOSES TWICE A DAY)
     Route: 065
     Dates: start: 20211019, end: 20211109

REACTIONS (5)
  - Major depression [Recovered/Resolved]
  - Diarrhoea [Recovered/Resolved]
  - Sleep deficit [Recovered/Resolved]
  - Abdominal pain upper [Recovered/Resolved]
  - Crying [Recovered/Resolved]

NARRATIVE: CASE EVENT DATE: 20211026
